FAERS Safety Report 14300215 (Version 1)
Quarter: 2017Q4

REPORT INFORMATION
  Report Type: Spontaneous
  Country: US (occurrence: US)
  Receive Date: 20171219
  Receipt Date: 20171219
  Transmission Date: 20180321
  Serious: No
  Sender: FDA-Public Use
  Company Number: US-TEVA-711561USA

PATIENT
  Sex: Male

DRUGS (1)
  1. AZITHROMYCIN ANHYDROUS. [Suspect]
     Active Substance: AZITHROMYCIN ANHYDROUS
     Indication: MALAISE
     Dosage: 200 MG / 5 ML
     Route: 048

REACTIONS (3)
  - Product taste abnormal [Unknown]
  - Product physical consistency issue [Unknown]
  - Vomiting [Unknown]
